FAERS Safety Report 24991582 (Version 1)
Quarter: 2025Q1

REPORT INFORMATION
  Report Type: Spontaneous
  Country: CN (occurrence: CN)
  Receive Date: 20250220
  Receipt Date: 20250220
  Transmission Date: 20250408
  Serious: Yes (Hospitalization)
  Sender: GLAXOSMITHKLINE
  Company Number: CN-GSK-CN2025APC018951

PATIENT

DRUGS (2)
  1. LAMOTRIGINE [Suspect]
     Active Substance: LAMOTRIGINE
     Indication: Product used for unknown indication
     Dosage: 30 DF, QD
     Route: 048
  2. LURASIDONE [Suspect]
     Active Substance: LURASIDONE
     Indication: Product used for unknown indication
     Dosage: 30 DF, QD

REACTIONS (3)
  - Somnolence [Recovering/Resolving]
  - Toxicity to various agents [Recovering/Resolving]
  - Overdose [Unknown]
